FAERS Safety Report 5159429-9 (Version None)
Quarter: 2006Q4

REPORT INFORMATION
  Report Type: 
  Country: None (occurrence: None)
  Receive Date: 20061122
  Receipt Date: 20061122
  Transmission Date: 20070319
  Serious: Yes (Hospitalization)
  Sender: FDA-Public Use
  Company Number: None

PATIENT
  Age: 50 Year
  Sex: Male

DRUGS (11)
  1. NAFCILLIN SODIUM [Suspect]
     Indication: STAPHYLOCOCCAL INFECTION
     Dosage: IV   2-3 WEEKS
     Route: 042
  2. WELLBUTRIN [Concomitant]
  3. RISPERDAL [Concomitant]
  4. PAROXETINE HCL [Concomitant]
  5. GLIPIZIDE [Concomitant]
  6. ATENOLOL [Concomitant]
  7. PANTOPRAZOLE SODIUM [Concomitant]
  8. POTASSIUM CHLORIDE [Concomitant]
  9. GLUCOSAMINE (OTC) [Concomitant]
  10. GREEN TEA [Concomitant]
  11. GARLIC REMEDIES [Concomitant]

REACTIONS (11)
  - ASCITES [None]
  - CHROMATURIA [None]
  - CIRRHOSIS ALCOHOLIC [None]
  - COAGULOPATHY [None]
  - HEPATIC CIRRHOSIS [None]
  - HEPATIC NEOPLASM [None]
  - HEPATITIS [None]
  - HEPATOCELLULAR DAMAGE [None]
  - HEPATOTOXICITY [None]
  - JAUNDICE [None]
  - PANCYTOPENIA [None]
